FAERS Safety Report 13360690 (Version 2)
Quarter: 2017Q3

REPORT INFORMATION
  Report Type: Spontaneous
  Country: CA (occurrence: CA)
  Receive Date: 20170322
  Receipt Date: 20170831
  Transmission Date: 20171127
  Serious: Yes (Other)
  Sender: FDA-Public Use
  Company Number: CA-SA-2017SA043008

PATIENT
  Age: 69 Year
  Sex: Female

DRUGS (10)
  1. LEFLUNOMIDE. [Suspect]
     Active Substance: LEFLUNOMIDE
     Indication: RHEUMATOID ARTHRITIS
     Route: 065
  2. METHOTREXATE SODIUM. [Suspect]
     Active Substance: METHOTREXATE SODIUM
     Indication: RHEUMATOID ARTHRITIS
     Route: 065
  3. ORENCIA [Suspect]
     Active Substance: ABATACEPT
     Indication: RHEUMATOID ARTHRITIS
     Route: 065
  4. SULFASALAZINE. [Suspect]
     Active Substance: SULFASALAZINE
     Indication: RHEUMATOID ARTHRITIS
     Route: 065
  5. ENBREL [Suspect]
     Active Substance: ETANERCEPT
     Indication: RHEUMATOID ARTHRITIS
     Route: 065
  6. GOLD [Concomitant]
     Active Substance: GOLD
     Route: 065
  7. PREDNISONE. [Concomitant]
     Active Substance: PREDNISONE
     Route: 065
  8. PLAQUENIL [Suspect]
     Active Substance: HYDROXYCHLOROQUINE SULFATE
     Indication: RHEUMATOID ARTHRITIS
     Route: 065
  9. METHOTREXATE. [Concomitant]
     Active Substance: METHOTREXATE
     Route: 065
  10. HYDROMORPHONE [Concomitant]
     Active Substance: HYDROMORPHONE
     Indication: PAIN
     Route: 065

REACTIONS (11)
  - Osteonecrosis [Recovered/Resolved]
  - Infection [Recovered/Resolved]
  - Drug effect decreased [Unknown]
  - Post procedural infection [Recovered/Resolved]
  - Arthritis [Recovered/Resolved]
  - Arthropathy [Unknown]
  - Hip arthroplasty [Unknown]
  - Bone disorder [Recovered/Resolved]
  - Lower limb fracture [Recovered/Resolved]
  - Arthropathy [Recovered/Resolved]
  - Drug ineffective [Unknown]
